FAERS Safety Report 8523219-7 (Version None)
Quarter: 2012Q3

REPORT INFORMATION
  Report Type: 
  Country: None (occurrence: None)
  Receive Date: 20120720
  Receipt Date: 20120712
  Transmission Date: 20120928
  Serious: Yes (Other)
  Sender: FDA-Public Use
  Company Number: US-BAYER-2012-070863

PATIENT
  Age: 29 Year
  Sex: Female
  Weight: 71 kg

DRUGS (4)
  1. YASMIN [Suspect]
  2. VICODIN [Concomitant]
     Dosage: 5/500 MG
     Route: 048
     Dates: start: 20100815
  3. MOTRIN [Concomitant]
     Dosage: 800 MG, UNK
     Dates: start: 20100815
  4. DROSPIRENONE AND ETHINYL ESTRADIOL [Suspect]

REACTIONS (1)
  - DEEP VEIN THROMBOSIS [None]
